FAERS Safety Report 21884673 (Version 2)
Quarter: 2023Q2

REPORT INFORMATION
  Report Type: Spontaneous
  Country: US (occurrence: US)
  Receive Date: 20230119
  Receipt Date: 20230411
  Transmission Date: 20230722
  Serious: No
  Sender: FDA-Public Use
  Company Number: US-PFIZER INC-202300018645

PATIENT
  Age: 38 Year
  Sex: Female

DRUGS (6)
  1. XELJANZ XR [Suspect]
     Active Substance: TOFACITINIB CITRATE
     Dosage: 11 MG, DAILY
     Route: 048
     Dates: start: 20220407
  2. XELJANZ XR [Suspect]
     Active Substance: TOFACITINIB CITRATE
     Dosage: 11 MG, EVERY OTHER DAY
     Route: 048
  3. BIOTIN [Concomitant]
     Active Substance: BIOTIN
  4. BIOFREEZE PAIN RELIEVING [Concomitant]
     Active Substance: MENTHOL
  5. VITAMIN D3 [Concomitant]
     Active Substance: CHOLECALCIFEROL
  6. OMEPRAZOLE [Concomitant]
     Active Substance: OMEPRAZOLE

REACTIONS (3)
  - Influenza [Recovered/Resolved]
  - Intentional product misuse [Recovering/Resolving]
  - Pain [Recovering/Resolving]

NARRATIVE: CASE EVENT DATE: 20221001
